FAERS Safety Report 6432740-7 (Version None)
Quarter: 2009Q4

REPORT INFORMATION
  Report Type: 
  Country: None (occurrence: None)
  Receive Date: 20091109
  Receipt Date: 20091105
  Transmission Date: 20100525
  Serious: Yes (Death)
  Sender: FDA-Public Use
  Company Number: CN-ASTRAZENECA-2009SE22727

PATIENT
  Age: 20835 Day
  Sex: Female
  Weight: 58 kg

DRUGS (2)
  1. IRESSA [Suspect]
     Indication: NON-SMALL CELL LUNG CANCER
     Route: 048
     Dates: start: 20090521
  2. APD [Concomitant]
     Indication: METASTASES TO BONE
     Route: 042
     Dates: start: 20091006, end: 20091006

REACTIONS (1)
  - SUDDEN DEATH [None]
